FAERS Safety Report 16673468 (Version 3)
Quarter: 2019Q4

REPORT INFORMATION
  Report Type: Spontaneous
  Country: US (occurrence: US)
  Receive Date: 20190806
  Receipt Date: 20191108
  Transmission Date: 20200122
  Serious: No
  Sender: FDA-Public Use
  Company Number: US-PFIZER INC-2019335472

PATIENT
  Age: 69 Year
  Sex: Male
  Weight: 111.13 kg

DRUGS (5)
  1. LYRICA [Suspect]
     Active Substance: PREGABALIN
     Indication: NEUROPATHY PERIPHERAL
     Dosage: 1 DF, WEEKLY ONE CAPSULE IN THE MORNING FOR A WEEK
     Dates: start: 20190627
  2. LYRICA [Suspect]
     Active Substance: PREGABALIN
     Dosage: 2 DF, DAILY (INCREASED HIS DOSE UP TO TWICE DAILY FOR TWO WEEKS)
  3. LYRICA [Suspect]
     Active Substance: PREGABALIN
     Indication: NEUROPATHY PERIPHERAL
     Dosage: 75 MG, 1X/DAY [ONE CAPSULE IN THE MORNING FOR A WEEK ]
  4. LYRICA [Suspect]
     Active Substance: PREGABALIN
     Indication: NEURALGIA
     Dosage: 75 MG, 2X/DAY [ONCE IN THE MORNING AND ONE AFTER DINNER]
     Route: 048
     Dates: start: 20190711
  5. LYRICA [Suspect]
     Active Substance: PREGABALIN
     Dosage: UNK
     Route: 048
     Dates: start: 201907, end: 201908

REACTIONS (4)
  - Intentional product use issue [Unknown]
  - Dizziness [Unknown]
  - Drug ineffective [Not Recovered/Not Resolved]
  - Diarrhoea [Recovered/Resolved]

NARRATIVE: CASE EVENT DATE: 20190627
